FAERS Safety Report 16699936 (Version 1)
Quarter: 2019Q3

REPORT INFORMATION
  Report Type: Report from Study
  Country: US (occurrence: US)
  Receive Date: 20190813
  Receipt Date: 20190813
  Transmission Date: 20191004
  Serious: Yes (Death, Life-Threatening, Hospitalization)
  Sender: FDA-Public Use
  Company Number: US-STEMLINE THERAPEUTICS, INC.-2019ST000057

PATIENT
  Age: 72 Year
  Sex: Male
  Weight: 109.5 kg

DRUGS (2)
  1. AZACITIDINE. [Suspect]
     Active Substance: AZACITIDINE
     Indication: ACUTE MYELOID LEUKAEMIA
     Dosage: DAYS 1-7
     Route: 042
     Dates: start: 20190701, end: 20190707
  2. ELZONRIS [Suspect]
     Active Substance: TAGRAXOFUSP-ERZS
     Indication: ACUTE MYELOID LEUKAEMIA
     Dosage: DAYS 1-3
     Route: 042
     Dates: start: 20190701, end: 20190703

REACTIONS (3)
  - Capillary leak syndrome [Fatal]
  - Multiple organ dysfunction syndrome [Fatal]
  - Lung infection [Fatal]

NARRATIVE: CASE EVENT DATE: 201907
